FAERS Safety Report 14600408 (Version 3)
Quarter: 2018Q3

REPORT INFORMATION
  Report Type: Report from Study
  Country: US (occurrence: US)
  Receive Date: 20180305
  Receipt Date: 20180822
  Transmission Date: 20181010
  Serious: Yes (Hospitalization)
  Sender: FDA-Public Use
  Company Number: PHEH2018US007008

PATIENT
  Age: 75 Year
  Sex: Female

DRUGS (1)
  1. COSENTYX [Suspect]
     Active Substance: SECUKINUMAB
     Indication: PSORIATIC ARTHROPATHY
     Dosage: 300 MG, QMO
     Route: 058
     Dates: start: 20180116

REACTIONS (8)
  - Diarrhoea [Unknown]
  - Haemorrhoids [Not Recovered/Not Resolved]
  - Malaise [Unknown]
  - Abdominal discomfort [Unknown]
  - Abdominal distension [Unknown]
  - Drug ineffective [Unknown]
  - Haemorrhage [Unknown]
  - Psoriasis [Unknown]

NARRATIVE: CASE EVENT DATE: 20180220
